FAERS Safety Report 8243631-3 (Version None)
Quarter: 2012Q1

REPORT INFORMATION
  Report Type: 
  Country: None (occurrence: None)
  Receive Date: 20120329
  Receipt Date: 20120321
  Transmission Date: 20120608
  Serious: Yes (Hospitalization, Other)
  Sender: FDA-Public Use
  Company Number: CA-JNJFOC-20120310697

PATIENT
  Sex: Male

DRUGS (11)
  1. REMICADE [Suspect]
     Indication: CROHN'S DISEASE
     Route: 042
     Dates: start: 20120125
  2. LUMIGAN [Concomitant]
     Route: 065
  3. LIPITOR [Concomitant]
     Route: 065
  4. PERINDOPRIL [Concomitant]
     Route: 065
  5. ABRAXANE [Concomitant]
     Route: 065
  6. IMURAN [Concomitant]
     Route: 065
  7. NEXIUM [Concomitant]
     Route: 065
  8. REMICADE [Suspect]
     Route: 042
     Dates: start: 20070716
  9. CHILDRENS ASPIRIN [Concomitant]
     Route: 065
  10. METFORMIN HCL [Concomitant]
     Route: 065
  11. MELATONIN [Concomitant]
     Route: 065

REACTIONS (6)
  - INFLUENZA [None]
  - POUCHITIS [None]
  - DEHYDRATION [None]
  - RENAL FAILURE [None]
  - CROHN'S DISEASE [None]
  - PANCREATITIS [None]
